FAERS Safety Report 12682854 (Version 1)
Quarter: 2016Q3

REPORT INFORMATION
  Report Type: Spontaneous
  Country: US (occurrence: None)
  Receive Date: 20160824
  Receipt Date: 20160824
  Transmission Date: 20161109
  Serious: Yes (Death)
  Sender: FDA-Public Use
  Company Number: None

PATIENT
  Age: 84 Year
  Sex: Male
  Weight: 53.6 kg

DRUGS (15)
  1. ASPIRIN. [Concomitant]
     Active Substance: ASPIRIN
  2. PROSCAR [Suspect]
     Active Substance: FINASTERIDE
     Route: 048
  3. FOLIC ACID. [Concomitant]
     Active Substance: FOLIC ACID
  4. METOPROLOL. [Concomitant]
     Active Substance: METOPROLOL
  5. ENZALUTAMIDE 160 MG CATALENT PHARMA SOLUTIONS FOR ASTELLA [Suspect]
     Active Substance: ENZALUTAMIDE
     Indication: PROSTATE CANCER
     Route: 048
     Dates: start: 20160629, end: 20160723
  6. DELTASONE [Concomitant]
     Active Substance: PREDNISONE
  7. GABAPENTIN. [Concomitant]
     Active Substance: GABAPENTIN
  8. ZOLPIDEM [Concomitant]
     Active Substance: ZOLPIDEM\ZOLPIDEM TARTRATE
  9. CALCIUM ACETATE. [Concomitant]
     Active Substance: CALCIUM ACETATE
  10. VITAMIN B COMPLEX [Concomitant]
     Active Substance: CYANOCOBALAMIN\DEXPANTHENOL\NIACINAMIDE\PYRIDOXINE HYDROCHLORIDE\RIBOFLAVIN 5^-PHOSPHATE SODIUM\THIAMINE HYDROCHLORIDE\VITAMIN B COMPLEX
  11. VITAMIN C [Concomitant]
     Active Substance: ASCORBIC ACID
  12. CASODEX [Concomitant]
     Active Substance: BICALUTAMIDE
  13. OXYCODONE [Concomitant]
     Active Substance: OXYCODONE
  14. KENALOG [Concomitant]
     Active Substance: TRIAMCINOLONE ACETONIDE
  15. ALLOPURINOL (ZYLOPRIM) [Concomitant]

REACTIONS (5)
  - Leukocytosis [None]
  - Abdominal pain [None]
  - Nausea [None]
  - Stoma site haemorrhage [None]
  - Pneumatosis [None]

NARRATIVE: CASE EVENT DATE: 20160725
